FAERS Safety Report 14642669 (Version 2)
Quarter: 2019Q1

REPORT INFORMATION
  Report Type: Report from Study
  Country: AU (occurrence: AU)
  Receive Date: 20180315
  Receipt Date: 20190206
  Transmission Date: 20190417
  Serious: Yes (Life-Threatening, Hospitalization)
  Sender: FDA-Public Use
  Company Number: AU-ASTRAZENECA-2018SE13691

PATIENT
  Age: 70 Year
  Sex: Male
  Weight: 59.2 kg

DRUGS (19)
  1. ACALABRUTINIB. [Suspect]
     Active Substance: ACALABRUTINIB
     Indication: CHRONIC LYMPHOCYTIC LEUKAEMIA
     Route: 048
     Dates: start: 20170510, end: 20170629
  2. ACALABRUTINIB. [Suspect]
     Active Substance: ACALABRUTINIB
     Indication: CHRONIC LYMPHOCYTIC LEUKAEMIA
     Route: 048
     Dates: start: 20170711, end: 20170720
  3. ACALABRUTINIB. [Suspect]
     Active Substance: ACALABRUTINIB
     Indication: CHRONIC LYMPHOCYTIC LEUKAEMIA
     Route: 048
  4. PARACETAMOL [Concomitant]
     Active Substance: ACETAMINOPHEN
     Indication: PYREXIA
     Dosage: EVERY 4 HOURS
     Dates: start: 2018, end: 2018
  5. ACALABRUTINIB. [Suspect]
     Active Substance: ACALABRUTINIB
     Indication: CHRONIC LYMPHOCYTIC LEUKAEMIA
     Route: 048
     Dates: start: 20170317, end: 20170411
  6. CALTRATE [Concomitant]
     Active Substance: CALCIUM CARBONATE
     Indication: OSTEOPOROSIS
     Dates: start: 2012
  7. PARACETAMOL [Concomitant]
     Active Substance: ACETAMINOPHEN
     Indication: MOUTH ULCERATION
     Dosage: AS REQUIRED
  8. PARACETAMOL [Concomitant]
     Active Substance: ACETAMINOPHEN
     Indication: MOUTH ULCERATION
     Dosage: EVERY 4 HOURS
     Dates: start: 2018, end: 2018
  9. DOCUSATE + SENNOSIDE [Concomitant]
     Indication: CONSTIPATION
     Dosage: TWICE PER DAY
     Dates: start: 2018, end: 2018
  10. OBINUTUZUMAB. [Suspect]
     Active Substance: OBINUTUZUMAB
     Indication: CHRONIC LYMPHOCYTIC LEUKAEMIA
     Dosage: COMPLETED STUDY REGIMEN ONCE/SINGLE ADMINISTRATION
     Route: 042
     Dates: end: 20170510
  11. PARACETAMOL [Concomitant]
     Active Substance: ACETAMINOPHEN
     Indication: PYREXIA
     Dosage: AS REQUIRED
  12. MORPHINE [Concomitant]
     Active Substance: MORPHINE
     Indication: ABDOMINAL PAIN
     Dosage: AS REQUIRED
     Dates: start: 2018, end: 2018
  13. ONDANSETRON [Concomitant]
     Active Substance: ONDANSETRON
     Indication: NAUSEA
     Dosage: AS REQUIRED
     Dates: start: 2018, end: 2018
  14. OBINUTUZUMAB. [Suspect]
     Active Substance: OBINUTUZUMAB
     Indication: CHRONIC LYMPHOCYTIC LEUKAEMIA
     Dosage: 100.0MG ONCE/SINGLE ADMINISTRATION
     Route: 042
     Dates: start: 20161221, end: 20161221
  15. ACALABRUTINIB. [Suspect]
     Active Substance: ACALABRUTINIB
     Indication: CHRONIC LYMPHOCYTIC LEUKAEMIA
     Route: 048
     Dates: start: 20161123, end: 20170215
  16. ACALABRUTINIB. [Suspect]
     Active Substance: ACALABRUTINIB
     Indication: CHRONIC LYMPHOCYTIC LEUKAEMIA
     Route: 048
     Dates: start: 20170216, end: 20170316
  17. LIGNOCAINE [Concomitant]
     Active Substance: LIDOCAINE HYDROCHLORIDE
     Indication: ABDOMINAL PAIN UPPER
     Dosage: EVERY 4 HOURS
     Dates: start: 2018, end: 2018
  18. ACALABRUTINIB. [Suspect]
     Active Substance: ACALABRUTINIB
     Indication: CHRONIC LYMPHOCYTIC LEUKAEMIA
     Route: 048
     Dates: start: 20170412, end: 20170509
  19. ACALABRUTINIB. [Suspect]
     Active Substance: ACALABRUTINIB
     Indication: CHRONIC LYMPHOCYTIC LEUKAEMIA
     Route: 048
     Dates: start: 20170721, end: 20171023

REACTIONS (1)
  - Febrile neutropenia [Recovered/Resolved]

NARRATIVE: CASE EVENT DATE: 20180115
